FAERS Safety Report 4298007-0 (Version None)
Quarter: 2004Q1

REPORT INFORMATION
  Report Type: 
  Country: None (occurrence: None)
  Receive Date: 20040218
  Receipt Date: 20011002
  Transmission Date: 20041129
  Serious: Yes (Other)
  Sender: FDA-Public Use
  Company Number: US-BRISTOL-MYERS SQUIBB COMPANY-11041399

PATIENT
  Age: 30 Year
  Sex: Female

DRUGS (8)
  1. STADOL [Suspect]
     Route: 045
     Dates: start: 19960311
  2. PHENOBARBITAL TAB [Concomitant]
  3. EFFEXOR [Concomitant]
  4. ATENOLOL [Concomitant]
  5. DEPAKOTE [Concomitant]
  6. ALPRAZOLAM [Concomitant]
  7. HYDROCODONE + ACETAMINOPHEN [Concomitant]
  8. ULTRAM [Concomitant]

REACTIONS (1)
  - DEPENDENCE [None]
